FAERS Safety Report 24705882 (Version 1)
Quarter: 2024Q4

REPORT INFORMATION
  Report Type: Spontaneous
  Country: US (occurrence: US)
  Receive Date: 20241206
  Receipt Date: 20241206
  Transmission Date: 20250114
  Serious: No
  Sender: BAUSCH AND LOMB
  Company Number: US-BAUSCHBL-2024BNL038239

PATIENT
  Age: 81 Year
  Sex: Female

DRUGS (1)
  1. XIIDRA [Suspect]
     Active Substance: LIFITEGRAST
     Indication: Dry eye
     Dosage: 1 DROP IN EACH EYE EVERY 12 HOURS (9AM AND 9PM)
     Route: 047
     Dates: start: 20241119

REACTIONS (7)
  - Eye pain [Unknown]
  - Lacrimation increased [Unknown]
  - Vision blurred [Unknown]
  - Visual impairment [Unknown]
  - Product use complaint [Unknown]
  - Product taste abnormal [Unknown]
  - Product after taste [Unknown]

NARRATIVE: CASE EVENT DATE: 20241101
